FAERS Safety Report 8181184-9 (Version None)
Quarter: 2012Q1

REPORT INFORMATION
  Report Type: 
  Country: None (occurrence: None)
  Receive Date: 20120302
  Receipt Date: 20120223
  Transmission Date: 20120608
  Serious: Yes (Life-Threatening)
  Sender: FDA-Public Use
  Company Number: JP-GLAXOSMITHKLINE-B0640097A

PATIENT
  Sex: Female
  Weight: 57 kg

DRUGS (5)
  1. PANTOL [Concomitant]
  2. CEFMETAZON [Concomitant]
  3. LOXONIN [Concomitant]
     Route: 048
  4. ARIXTRA [Suspect]
     Indication: THROMBOSIS PROPHYLAXIS
     Dosage: 2.5MG PER DAY
     Route: 058
     Dates: start: 20100311, end: 20100311
  5. SELBEX [Concomitant]
     Route: 048

REACTIONS (2)
  - DEEP VEIN THROMBOSIS [None]
  - PULMONARY EMBOLISM [None]
